FAERS Safety Report 9378081 (Version 1)
Quarter: 2013Q3

REPORT INFORMATION
  Report Type: Spontaneous
  Country: None (occurrence: GB)
  Receive Date: 20130701
  Receipt Date: 20130701
  Transmission Date: 20140515
  Serious: Yes (Other)
  Sender: FDA-Public Use
  Company Number: GB-ALLERGAN-1309175US

PATIENT
  Age: 71 Year
  Sex: Female

DRUGS (7)
  1. ALPHAGAN? 0.2% W/V (2 MG/ML) EYE DROPS SOLUTION [Suspect]
     Indication: GLAUCOMA
  2. TIMOLOL [Suspect]
     Indication: GLAUCOMA
  3. AZOPT [Suspect]
     Indication: GLAUCOMA
  4. COSOPT [Suspect]
     Indication: GLAUCOMA
     Dosage: 1 GTT, BID
     Route: 031
  5. TRUSOPT [Suspect]
     Indication: GLAUCOMA
  6. XALATAN [Suspect]
     Indication: GLAUCOMA
     Dosage: 1 GTT, QD
     Route: 031
  7. AMITRIPTYLINE [Concomitant]
     Dosage: 10 MG, QD AT NIGHT
     Route: 048

REACTIONS (1)
  - Glaucoma [Unknown]
